FAERS Safety Report 7861319-5 (Version None)
Quarter: 2011Q4

REPORT INFORMATION
  Report Type: 
  Country: None (occurrence: None)
  Receive Date: 20111027
  Receipt Date: 20111025
  Transmission Date: 20120403
  Serious: Yes (Other)
  Sender: FDA-Public Use
  Company Number: US-PFIZER INC-2011237832

PATIENT
  Sex: Female
  Weight: 61.7 kg

DRUGS (2)
  1. PREMARIN [Suspect]
     Indication: HYSTERECTOMY
     Dosage: UNK, 2X/WEEK
     Route: 067
  2. LOSARTAN [Concomitant]
     Indication: HYPERTENSION
     Dosage: 50 MG, 1X/DAY

REACTIONS (6)
  - DRUG HYPERSENSITIVITY [None]
  - COUGH [None]
  - INCREASED UPPER AIRWAY SECRETION [None]
  - ASTHMA [None]
  - CONDITION AGGRAVATED [None]
  - URTICARIA [None]
